FAERS Safety Report 4334506-0 (Version None)
Quarter: 2004Q2

REPORT INFORMATION
  Report Type: 
  Country: None (occurrence: None)
  Receive Date: 20040407
  Receipt Date: 20040311
  Transmission Date: 20050107
  Serious: Yes (Hospitalization)
  Sender: FDA-Public Use
  Company Number: FR-GLAXOSMITHKLINE-B0326378A

PATIENT
  Age: 29 Year
  Sex: Male
  Weight: 50 kg

DRUGS (2)
  1. FORTUM [Suspect]
     Indication: ILL-DEFINED DISORDER
     Dosage: 4G PER DAY
     Route: 065
     Dates: start: 20031209, end: 20031223
  2. VORICONAZOLE [Suspect]
     Indication: ILL-DEFINED DISORDER
     Dosage: 800MG PER DAY
     Route: 048
     Dates: start: 20031210, end: 20031221

REACTIONS (6)
  - ACUTE PULMONARY OEDEMA [None]
  - HAEMODIALYSIS [None]
  - OLIGURIA [None]
  - PROTEINURIA [None]
  - PULMONARY OEDEMA [None]
  - RENAL FAILURE ACUTE [None]
